FAERS Safety Report 7346262-2 (Version None)
Quarter: 2011Q1

REPORT INFORMATION
  Report Type: 
  Country: None (occurrence: None)
  Receive Date: 20110311
  Receipt Date: 20110309
  Transmission Date: 20110831
  Serious: No
  Sender: FDA-Public Use
  Company Number: US-PFIZER INC-2011052174

PATIENT
  Sex: Male
  Weight: 90.703 kg

DRUGS (1)
  1. ADVIL [Suspect]
     Indication: MYALGIA
     Dosage: UNK, 1X/DAY
     Route: 048
     Dates: start: 20110307, end: 20110301

REACTIONS (2)
  - TREMOR [None]
  - SNORING [None]
